FAERS Safety Report 5219705-8 (Version None)
Quarter: 2007Q1

REPORT INFORMATION
  Report Type: 
  Country: None (occurrence: None)
  Receive Date: 20070125
  Receipt Date: 20070115
  Transmission Date: 20070707
  Serious: Yes (Other)
  Sender: FDA-Public Use
  Company Number: DE-AMGEN-UK202370

PATIENT
  Sex: Female

DRUGS (8)
  1. MIMPARA [Suspect]
     Indication: HYPERPARATHYROIDISM SECONDARY
     Route: 048
     Dates: start: 20050712
  2. CALCITRIOL [Concomitant]
     Route: 048
  3. SEVELAMER HCL [Concomitant]
     Route: 048
  4. VITAMINS [Concomitant]
  5. EPOETIN ALFA [Concomitant]
  6. IRON [Concomitant]
  7. FENISTIL [Concomitant]
  8. FEXOFENADINE [Concomitant]

REACTIONS (1)
  - HYPOTENSION [None]
